FAERS Safety Report 8229793-2 (Version None)
Quarter: 2012Q1

REPORT INFORMATION
  Report Type: 
  Country: None (occurrence: None)
  Receive Date: 20120322
  Receipt Date: 20120309
  Transmission Date: 20120608
  Serious: Yes (Other)
  Sender: FDA-Public Use
  Company Number: FR-MYLANLABS-2012S1005192

PATIENT
  Age: 62 Year
  Sex: Female

DRUGS (2)
  1. AZITHROMYCIN [Suspect]
     Indication: BRONCHITIS
     Route: 048
     Dates: start: 20120211, end: 20120211
  2. AZITHROMYCIN [Suspect]
     Route: 048
     Dates: start: 20120212, end: 20120214

REACTIONS (2)
  - DIZZINESS [None]
  - TREMOR [None]
